FAERS Safety Report 5338473-2 (Version None)
Quarter: 2007Q2

REPORT INFORMATION
  Report Type: 
  Country: None (occurrence: None)
  Receive Date: 20070322
  Receipt Date: 20060725
  Transmission Date: 20071010
  Serious: Yes (Other)
  Sender: FDA-Public Use
  Company Number: 200612071BCC

PATIENT
  Age: 76 Year
  Sex: Female
  Weight: 97.0698 kg

DRUGS (10)
  1. ALEVE [Suspect]
     Indication: PAIN
     Dosage: 220 MG, BID, ORAL
     Route: 048
     Dates: start: 20051110, end: 20051111
  2. ALEVE [Suspect]
     Indication: SCIATICA
     Dosage: 220 MG, BID, ORAL
     Route: 048
     Dates: start: 20051110, end: 20051111
  3. VERELAN [Concomitant]
  4. LISINOPRIL AND HYDROCHLOROTHIAZIDE [Concomitant]
  5. CLONIDINE HCL [Concomitant]
  6. SYNTHROID [Concomitant]
  7. CALCIUM CHLORIDE [Concomitant]
  8. ASCORBIC ACID [Concomitant]
  9. MULTI-VITAMIN [Concomitant]
  10. VITAMIN D [Concomitant]

REACTIONS (6)
  - ANAEMIA [None]
  - ANOREXIA [None]
  - DIZZINESS [None]
  - FAECES DISCOLOURED [None]
  - GASTRIC HAEMORRHAGE [None]
  - HAEMOGLOBIN DECREASED [None]
